FAERS Safety Report 25289486 (Version 2)
Quarter: 2025Q3

REPORT INFORMATION
  Report Type: Spontaneous
  Country: CA (occurrence: CA)
  Receive Date: 20250509
  Receipt Date: 20250930
  Transmission Date: 20251021
  Serious: Yes (Hospitalization)
  Sender: BRACCO
  Company Number: CA-BRACCO-2025CA02886

PATIENT
  Age: 44 Year
  Sex: Female

DRUGS (1)
  1. PROHANCE [Suspect]
     Active Substance: GADOTERIDOL
     Indication: Imaging procedure
     Route: 042
     Dates: start: 20250502, end: 20250502

REACTIONS (2)
  - Paraesthesia [Unknown]
  - Throat irritation [Unknown]

NARRATIVE: CASE EVENT DATE: 20250502
